FAERS Safety Report 9019787 (Version 1)
Quarter: 2013Q1

REPORT INFORMATION
  Report Type: Spontaneous
  Country: IT (occurrence: IT)
  Receive Date: 20130118
  Receipt Date: 20130118
  Transmission Date: 20140127
  Serious: Yes (Hospitalization)
  Sender: FDA-Public Use
  Company Number: IT-TEVA-380100ISR

PATIENT
  Age: 71 None
  Sex: Male

DRUGS (1)
  1. ACICLOVIR [Suspect]
     Indication: HERPES SIMPLEX
     Dosage: 1200 MILLIGRAM DAILY;
     Route: 048
     Dates: start: 20121230, end: 20121230

REACTIONS (1)
  - Abdominal pain upper [Recovering/Resolving]
